FAERS Safety Report 10060921 (Version 5)
Quarter: 2014Q3

REPORT INFORMATION
  Report Type: Spontaneous
  Country: US (occurrence: US)
  Receive Date: 20140404
  Receipt Date: 20140711
  Transmission Date: 20150326
  Serious: No
  Sender: FDA-Public Use
  Company Number: US-GILEAD-2014-0098777

PATIENT
  Sex: Female

DRUGS (2)
  1. REVATIO [Concomitant]
     Active Substance: SILDENAFIL CITRATE
  2. LETAIRIS [Suspect]
     Active Substance: AMBRISENTAN
     Indication: PULMONARY HYPERTENSION
     Dosage: 5 MG, QD
     Route: 065
     Dates: start: 20140404

REACTIONS (6)
  - Respiratory tract irritation [Unknown]
  - Nasal congestion [Unknown]
  - Swelling [Unknown]
  - Oedema [Unknown]
  - Headache [Unknown]
  - Weight increased [Unknown]
